FAERS Safety Report 13038021 (Version 1)
Quarter: 2016Q4

REPORT INFORMATION
  Report Type: Spontaneous
  Country: US (occurrence: US)
  Receive Date: 20161213
  Receipt Date: 20161213
  Transmission Date: 20170207
  Serious: Yes (Life-Threatening)
  Sender: FDA-Public Use
  Company Number: None

PATIENT
  Age: 53 Year
  Sex: Female
  Weight: 90 kg

DRUGS (6)
  1. ZOLPIDEM TARTRATE TORRENT [Suspect]
     Active Substance: ZOLPIDEM TARTRATE
     Indication: SLEEP DISORDER THERAPY
     Route: 048
     Dates: start: 20161208, end: 20161208
  2. LEVOTHYROXINE. [Concomitant]
     Active Substance: LEVOTHYROXINE
  3. VITAMENS [Concomitant]
  4. FISH OIL [Concomitant]
     Active Substance: FISH OIL
  5. FLUOXETINE [Concomitant]
     Active Substance: FLUOXETINE HYDROCHLORIDE
  6. PENTEREMINE [Concomitant]

REACTIONS (8)
  - Wrong drug administered [None]
  - Product packaging confusion [None]
  - Loss of consciousness [None]
  - Diplopia [None]
  - Poisoning [None]
  - Accidental overdose [None]
  - Amnesia [None]
  - Imprisonment [None]

NARRATIVE: CASE EVENT DATE: 20161208
